FAERS Safety Report 21570002 (Version 2)
Quarter: 2023Q1

REPORT INFORMATION
  Report Type: Spontaneous
  Country: US (occurrence: US)
  Receive Date: 20221109
  Receipt Date: 20230202
  Transmission Date: 20230417
  Serious: Yes (Other)
  Sender: FDA-Public Use
  Company Number: US-BRISTOL-MYERS SQUIBB COMPANY-2022-130661

PATIENT
  Age: 78 Year
  Sex: Male
  Weight: 70.31 kg

DRUGS (3)
  1. OPDIVO [Suspect]
     Active Substance: NIVOLUMAB
     Indication: Mesothelioma
     Route: 042
     Dates: start: 202205, end: 202210
  2. YERVOY [Suspect]
     Active Substance: IPILIMUMAB
     Indication: Mesothelioma
     Route: 042
     Dates: start: 2022, end: 202210
  3. PREDNISONE [Concomitant]
     Active Substance: PREDNISONE
     Indication: Product used for unknown indication

REACTIONS (13)
  - Vision blurred [Unknown]
  - Somnolence [Unknown]
  - Anaemia [Unknown]
  - Skin discolouration [Unknown]
  - Onychoclasis [Unknown]
  - Pneumonitis [Unknown]
  - Decreased appetite [Unknown]
  - Weight decreased [Unknown]
  - Off label use [Unknown]
  - Fatigue [Unknown]
  - Dyspnoea [Unknown]
  - Dry skin [Unknown]
  - Productive cough [Unknown]

NARRATIVE: CASE EVENT DATE: 20220501
